FAERS Safety Report 5794577-1 (Version None)
Quarter: 2008Q2

REPORT INFORMATION
  Report Type: 
  Country: None (occurrence: None)
  Receive Date: 20080625
  Receipt Date: 20080611
  Transmission Date: 20081010
  Serious: Yes (Hospitalization)
  Sender: FDA-Public Use
  Company Number: 2008AL007182

PATIENT
  Age: 77 Year
  Sex: Female

DRUGS (7)
  1. DILTIAZEM HYDROCHLORIDE [Suspect]
     Dosage: 90 MG; BID
  2. ATENOLOL [Concomitant]
  3. BEZAFIBRATE [Concomitant]
  4. RAMIPRIL [Concomitant]
  5. OMEPRAZOLE [Concomitant]
  6. ASPIRIN [Concomitant]
  7. AMITRIPTYLINE HCL [Concomitant]

REACTIONS (4)
  - BRADYCARDIA [None]
  - CIRCULATORY COLLAPSE [None]
  - PALPITATIONS [None]
  - SINUS ARRHYTHMIA [None]
